FAERS Safety Report 16768763 (Version 2)
Quarter: 2021Q3

REPORT INFORMATION
  Report Type: Spontaneous
  Country: US (occurrence: US)
  Receive Date: 20190903
  Receipt Date: 20210805
  Transmission Date: 20211014
  Serious: No
  Sender: FDA-Public Use
  Company Number: US-SA-2019SA238585

PATIENT
  Age: 43 Year
  Sex: Female
  Weight: 126.98 kg

DRUGS (1)
  1. DUPIXENT [Suspect]
     Active Substance: DUPILUMAB
     Indication: ASTHMA
     Dosage: 300 MG, QOW
     Route: 058
     Dates: start: 20190701

REACTIONS (8)
  - Injection site exfoliation [Unknown]
  - Injection site erythema [Unknown]
  - Injection site rash [Unknown]
  - Product use issue [Unknown]
  - Injection site pain [Unknown]
  - Injection site reaction [Unknown]
  - Injection site scab [Unknown]
  - Injection site pruritus [Unknown]

NARRATIVE: CASE EVENT DATE: 201907
